FAERS Safety Report 17036817 (Version 1)
Quarter: 2019Q4

REPORT INFORMATION
  Report Type: Report from Study
  Country: IT (occurrence: IT)
  Receive Date: 20191115
  Receipt Date: 20191115
  Transmission Date: 20200122
  Serious: Yes (Other)
  Sender: FDA-Public Use
  Company Number: PHHY2015IT164606

PATIENT
  Age: 38 Year
  Sex: Female

DRUGS (1)
  1. GILENYA [Suspect]
     Active Substance: FINGOLIMOD HYDROCHLORIDE
     Indication: MULTIPLE SCLEROSIS
     Dosage: UNK, QD
     Route: 048
     Dates: start: 20141029

REACTIONS (25)
  - Tooth abscess [Recovered/Resolved]
  - Gamma-glutamyltransferase increased [Unknown]
  - Urinary tract infection [Recovered/Resolved]
  - Menorrhagia [Unknown]
  - Pyrexia [Unknown]
  - Lymphocyte count decreased [Not Recovered/Not Resolved]
  - Dysaesthesia [Unknown]
  - Arthralgia [Unknown]
  - Aspartate aminotransferase increased [Unknown]
  - Papilloma viral infection [Unknown]
  - Back pain [Recovered/Resolved]
  - Blood bilirubin decreased [Unknown]
  - Uterine polyp [Unknown]
  - Amenorrhoea [Unknown]
  - Abdominal pain upper [Recovered/Resolved]
  - Oropharyngeal pain [Unknown]
  - Vomiting [Unknown]
  - Influenza [Recovered/Resolved]
  - Sciatica [Unknown]
  - Influenza like illness [Unknown]
  - Oral herpes [Unknown]
  - Alanine aminotransferase increased [Unknown]
  - Gastrointestinal disorder [Unknown]
  - Abdominal pain [Recovered/Resolved]
  - Rhinitis [Unknown]

NARRATIVE: CASE EVENT DATE: 20150708
